FAERS Safety Report 24969766 (Version 1)
Quarter: 2025Q1

REPORT INFORMATION
  Report Type: Spontaneous
  Country: DE (occurrence: DE)
  Receive Date: 20250214
  Receipt Date: 20250214
  Transmission Date: 20250408
  Serious: Yes (Hospitalization, Other)
  Sender: ORGANON
  Company Number: DE-ORGANON-2008-172072-NL

PATIENT
  Age: 51 Year
  Sex: Male

DRUGS (5)
  1. MIRTAZAPINE [Interacting]
     Active Substance: MIRTAZAPINE
     Indication: Product used for unknown indication
     Dosage: DAILY DOSE: 30 MG MILLIGRAM(S) EVERY DAY
     Route: 048
  2. MELPERONE HYDROCHLORIDE [Interacting]
     Active Substance: MELPERONE HYDROCHLORIDE
     Dosage: 50 MILLIGRAM, QD
     Route: 048
  3. ALCOHOL [Interacting]
     Active Substance: ALCOHOL
  4. PANCRELIPASE [Concomitant]
     Active Substance: PANCRELIPASE
     Dosage: 4 DOSAGE FORM, QD
     Route: 048
  5. PANTOZOL [Concomitant]
     Active Substance: PANTOPRAZOLE SODIUM
     Dosage: 40 MILLIGRAM, QD
     Route: 048
     Dates: start: 20061004

REACTIONS (4)
  - Generalised tonic-clonic seizure [Recovered/Resolved]
  - Drug interaction [Recovered/Resolved]
  - Generalised tonic-clonic seizure [Recovered/Resolved]
  - Tongue biting [Recovered/Resolved]

NARRATIVE: CASE EVENT DATE: 20061006
